FAERS Safety Report 4648816-0 (Version None)
Quarter: 2005Q2

REPORT INFORMATION
  Report Type: 
  Country: None (occurrence: None)
  Receive Date: 20050427
  Receipt Date: 20050224
  Transmission Date: 20051028
  Serious: Yes (Other)
  Sender: FDA-Public Use
  Company Number: SUSI-2005-00308

PATIENT
  Sex: 0

DRUGS (3)
  1. ADDERALL 10 [Suspect]
  2. ZYRTEC [Concomitant]
  3. ALLEGRA [Concomitant]

REACTIONS (2)
  - DIZZINESS [None]
  - SYNCOPE [None]
